FAERS Safety Report 7399732-5 (Version None)
Quarter: 2011Q2

REPORT INFORMATION
  Report Type: 
  Country: None (occurrence: None)
  Receive Date: 20110407
  Receipt Date: 20110328
  Transmission Date: 20111010
  Serious: Yes (Hospitalization)
  Sender: FDA-Public Use
  Company Number: KR-WATSON-2011-04797

PATIENT
  Age: 67 Year
  Sex: Male

DRUGS (1)
  1. FENTANYL CITRATE [Suspect]
     Indication: NECK PAIN
     Dosage: 10 CM2 EVERY 8 HRS
     Route: 062

REACTIONS (4)
  - RESPIRATORY DEPRESSION [None]
  - COMA [None]
  - POISONING [None]
  - DRUG ABUSE [None]
